FAERS Safety Report 8578467-7 (Version None)
Quarter: 2012Q3

REPORT INFORMATION
  Report Type: 
  Country: None (occurrence: None)
  Receive Date: 20120808
  Receipt Date: 20120730
  Transmission Date: 20120928
  Serious: Yes (Other)
  Sender: FDA-Public Use
  Company Number: CA-JNJFOC-20120800280

PATIENT
  Sex: Female
  Weight: 51.26 kg

DRUGS (2)
  1. REMICADE [Suspect]
     Indication: CROHN'S DISEASE
     Route: 042
     Dates: start: 20120401
  2. REMICADE [Suspect]
     Route: 042
     Dates: start: 20110901

REACTIONS (8)
  - TYPE IV HYPERSENSITIVITY REACTION [None]
  - LUPUS-LIKE SYNDROME [None]
  - MYALGIA [None]
  - DRUG INEFFECTIVE [None]
  - BACK PAIN [None]
  - FISTULA [None]
  - INFUSION RELATED REACTION [None]
  - BONE PAIN [None]
